FAERS Safety Report 7020038-8 (Version None)
Quarter: 2010Q3

REPORT INFORMATION
  Report Type: 
  Country: None (occurrence: None)
  Receive Date: 20100929
  Receipt Date: 20080407
  Transmission Date: 20110219
  Serious: Yes (Other)
  Sender: FDA-Public Use
  Company Number: BR-RANBAXY-2008R5-15030

PATIENT

DRUGS (2)
  1. CECNOIN [Suspect]
     Indication: ACNE
     Dosage: 10 MG, TID
     Route: 048
     Dates: start: 20080301, end: 20080401
  2. FEMIANE [Concomitant]
     Indication: CONTRACEPTION
     Dosage: UNK
     Route: 048

REACTIONS (1)
  - PREGNANCY [None]
